FAERS Safety Report 12047927 (Version 2)
Quarter: 2016Q3

REPORT INFORMATION
  Report Type: Spontaneous
  Country: US (occurrence: US)
  Receive Date: 20160209
  Receipt Date: 20160708
  Transmission Date: 20161109
  Serious: Yes (Hospitalization, Other)
  Sender: FDA-Public Use
  Company Number: US-ASTRAZENECA-2016SE11707

PATIENT
  Age: 8 Year
  Sex: Female
  Weight: 19.5 kg

DRUGS (6)
  1. ERYTHROMYCIN. [Concomitant]
     Active Substance: ERYTHROMYCIN
     Indication: HELICOBACTER INFECTION
     Dosage: FOR JUST A TEN DAY OR A TWO WEEK COURSE
     Dates: start: 201301
  2. ERYTHROMYCIN. [Concomitant]
     Active Substance: ERYTHROMYCIN
     Indication: HELICOBACTER INFECTION
     Dosage: FOR JUST A TEN DAY OR A TWO WEEK COURSE
     Dates: start: 201401
  3. ERYTHROMYCIN. [Concomitant]
     Active Substance: ERYTHROMYCIN
     Indication: HELICOBACTER INFECTION
     Dosage: FOR JUST A TEN DAY OR A TWO WEEK COURSE
     Dates: start: 201401
  4. NEXIUM [Suspect]
     Active Substance: ESOMEPRAZOLE MAGNESIUM
     Indication: HELICOBACTER GASTRITIS
     Dosage: 10 MG IN MORNING AND 10 MG AT NIGHT
     Route: 048
     Dates: start: 201402, end: 20160209
  5. ERYTHROMYCIN. [Concomitant]
     Active Substance: ERYTHROMYCIN
     Indication: HELICOBACTER INFECTION
     Dosage: FOR JUST A TEN DAY OR A TWO WEEK COURSE
     Dates: start: 201301
  6. NEXIUM [Suspect]
     Active Substance: ESOMEPRAZOLE MAGNESIUM
     Indication: HELICOBACTER INFECTION
     Dosage: 10 MG IN MORNING AND 10 MG AT NIGHT
     Route: 048
     Dates: start: 201402, end: 20160209

REACTIONS (14)
  - Blood gastrin increased [Unknown]
  - Blood calcium decreased [Not Recovered/Not Resolved]
  - Neuroendocrine tumour [Unknown]
  - Tumour marker decreased [Not Recovered/Not Resolved]
  - Blood chromogranin A increased [Not Recovered/Not Resolved]
  - Serum serotonin increased [Not Recovered/Not Resolved]
  - Retching [Recovered/Resolved]
  - Blood gastrin decreased [Not Recovered/Not Resolved]
  - Malaise [Recovered/Resolved]
  - Tumour marker increased [Not Recovered/Not Resolved]
  - Serum serotonin decreased [Not Recovered/Not Resolved]
  - Vomiting [Recovered/Resolved]
  - Product use issue [Unknown]
  - Product quality issue [Unknown]

NARRATIVE: CASE EVENT DATE: 201402
